FAERS Safety Report 17720038 (Version 2)
Quarter: 2020Q2

REPORT INFORMATION
  Report Type: Spontaneous
  Country: US (occurrence: US)
  Receive Date: 20200428
  Receipt Date: 20200428
  Transmission Date: 20200714
  Serious: Yes (Other)
  Sender: FDA-Public Use
  Company Number: US-GILEAD-2020-0461585

PATIENT
  Age: 54 Year
  Sex: Male

DRUGS (4)
  1. REYATAZ [Concomitant]
     Active Substance: ATAZANAVIR SULFATE
  2. DAPSONE. [Concomitant]
     Active Substance: DAPSONE
  3. TRUVADA [Suspect]
     Active Substance: EMTRICITABINE\TENOFOVIR DISOPROXIL FUMARATE
     Indication: HIV INFECTION
     Dosage: UNK
     Route: 065
     Dates: start: 2005
  4. NORVIR [Concomitant]
     Active Substance: RITONAVIR

REACTIONS (19)
  - Diarrhoea [Unknown]
  - Dyspnoea exertional [Unknown]
  - Depression [Unknown]
  - Dizziness [Unknown]
  - Neuropathy peripheral [Unknown]
  - Renal disorder [Unknown]
  - Laboratory test abnormal [Unknown]
  - Pain in extremity [Unknown]
  - Oral mucosal eruption [Unknown]
  - Pneumonia [Unknown]
  - Drug ineffective [Unknown]
  - Nausea [Unknown]
  - Stomatitis [Unknown]
  - Sleep disorder [Unknown]
  - Bone disorder [Unknown]
  - Liver disorder [Unknown]
  - Tooth loss [Unknown]
  - Viral load abnormal [Unknown]
  - Fatigue [Unknown]

NARRATIVE: CASE EVENT DATE: 202004
